FAERS Safety Report 9035001 (Version 1)
Quarter: 2013Q1

REPORT INFORMATION
  Report Type: Spontaneous
  Country: IT (occurrence: None)
  Receive Date: 20130115
  Receipt Date: 20130115
  Transmission Date: 20140127
  Serious: Yes (Other)
  Sender: FDA-Public Use
  Company Number: DSA_61850_2013

PATIENT
  Age: 47 Year
  Sex: Male

DRUGS (3)
  1. ELIDEL [Suspect]
     Indication: GRANULOMA
     Route: 061
  2. TRIAMCINOLONE ACETONIDE [Concomitant]
  3. CHLORHEXIDINE [Concomitant]

REACTIONS (2)
  - Granuloma [None]
  - Disease recurrence [None]
